FAERS Safety Report 25839786 (Version 1)
Quarter: 2025Q3

REPORT INFORMATION
  Report Type: Report from Study
  Country: US (occurrence: US)
  Receive Date: 20250924
  Receipt Date: 20250924
  Transmission Date: 20251021
  Serious: No
  Sender: SUNOVION
  Company Number: US-SUMITOMO PHARMA SWITZERLAND GMBH-2025SPA011959

PATIENT
  Age: 67 Year
  Sex: Male

DRUGS (8)
  1. ORGOVYX [Suspect]
     Active Substance: RELUGOLIX
     Indication: Prostate cancer
     Route: 048
  2. ORGOVYX [Suspect]
     Active Substance: RELUGOLIX
     Route: 048
  3. ALLOPURINOL [Concomitant]
     Active Substance: ALLOPURINOL
  4. CALCIUM ACETATE [Concomitant]
     Active Substance: CALCIUM ACETATE
  5. COLCHICINE [Concomitant]
     Active Substance: COLCHICINE
  6. NAPROXEN [Concomitant]
     Active Substance: NAPROXEN
  7. HERBALS\TURMERIC [Concomitant]
     Active Substance: HERBALS\TURMERIC
  8. XTANDI [Concomitant]
     Active Substance: ENZALUTAMIDE

REACTIONS (1)
  - Arthritis [Unknown]
